FAERS Safety Report 21450932 (Version 2)
Quarter: 2022Q4

REPORT INFORMATION
  Report Type: Report from Study
  Country: US (occurrence: US)
  Receive Date: 20221013
  Receipt Date: 20221014
  Transmission Date: 20230113
  Serious: Yes (Death, Life-Threatening, Hospitalization, Other)
  Sender: FDA-Public Use
  Company Number: US-MYLANLABS-2022M1113511

PATIENT
  Sex: Male

DRUGS (2)
  1. OCTREOTIDE [Suspect]
     Active Substance: OCTREOTIDE
     Indication: Haemorrhage foetal
     Dosage: UNK
     Route: 065
  2. OCTREOTIDE [Suspect]
     Active Substance: OCTREOTIDE
     Indication: Gastrointestinal haemorrhage

REACTIONS (6)
  - Death [Fatal]
  - Cardio-respiratory arrest neonatal [Unknown]
  - Gastrointestinal haemorrhage [Unknown]
  - Disease recurrence [Unknown]
  - Hypotension [Unknown]
  - Off label use [Unknown]
